FAERS Safety Report 15235151 (Version 1)
Quarter: 2018Q3

REPORT INFORMATION
  Report Type: Spontaneous
  Country: DE (occurrence: DE)
  Receive Date: 20180803
  Receipt Date: 20180803
  Transmission Date: 20181010
  Serious: Yes (Hospitalization, Other)
  Sender: FDA-Public Use
  Company Number: DE-ALKEM LABORATORIES LIMITED-DE-ALKEM-2017-00759

PATIENT
  Age: 53 Year
  Sex: Female

DRUGS (3)
  1. CEFUROXIME AXETIL. [Suspect]
     Active Substance: CEFUROXIME AXETIL
     Indication: TONSILLITIS
     Dosage: UNK
     Route: 048
  2. CEFUROXIME AXETIL. [Suspect]
     Active Substance: CEFUROXIME AXETIL
     Indication: RESPIRATORY TRACT INFECTION
  3. IBUPROFEN. [Concomitant]
     Active Substance: IBUPROFEN
     Indication: TONSILLITIS
     Dosage: UNK

REACTIONS (3)
  - Anaphylactic reaction [Recovered/Resolved]
  - Occupational exposure to product [Unknown]
  - Urticaria [Recovered/Resolved]
